APPROVED DRUG PRODUCT: INVANZ
Active Ingredient: ERTAPENEM SODIUM
Strength: EQ 1GM BASE/VIAL
Dosage Form/Route: INJECTABLE;INTRAMUSCULAR, INTRAVENOUS
Application: N021337 | Product #001 | TE Code: AP
Applicant: MERCK SHARP AND DOHME LLC A SUB OF MERCK AND CO INC
Approved: Nov 21, 2001 | RLD: Yes | RS: Yes | Type: RX